FAERS Safety Report 8137121-6 (Version None)
Quarter: 2012Q1

REPORT INFORMATION
  Report Type: 
  Country: None (occurrence: None)
  Receive Date: 20120215
  Receipt Date: 20120206
  Transmission Date: 20120608
  Serious: No
  Sender: FDA-Public Use
  Company Number: US-BIOGENIDEC-2012BI004765

PATIENT
  Sex: Female

DRUGS (12)
  1. AVONEX [Suspect]
     Route: 030
     Dates: start: 20110318
  2. PREMARIN [Concomitant]
     Indication: HOT FLUSH
     Route: 048
  3. DIOVAN [Concomitant]
     Indication: HYPERTENSION
     Route: 048
  4. TENORMIN [Concomitant]
     Indication: PRODUCT USED FOR UNKNOWN INDICATION
     Route: 048
  5. NASONEX [Concomitant]
     Indication: ALLERGIC SINUSITIS
     Route: 045
  6. NEURONTIN [Concomitant]
     Indication: PRODUCT USED FOR UNKNOWN INDICATION
     Route: 048
  7. HYDROCHLOROTHIAZIDE [Concomitant]
     Indication: HYPERTENSION
     Route: 048
  8. AVONEX [Suspect]
     Indication: MULTIPLE SCLEROSIS
     Route: 030
     Dates: start: 20000301, end: 20050301
  9. PULMICORT-100 [Concomitant]
     Indication: ALLERGIC SINUSITIS
     Route: 055
  10. PRAVASTATIN [Concomitant]
     Indication: BLOOD CHOLESTEROL INCREASED
     Route: 048
  11. AVONEX [Suspect]
     Route: 030
     Dates: start: 20080327, end: 20080615
  12. POTASSIUM [Concomitant]
     Indication: MUSCLE SPASMS
     Route: 048

REACTIONS (9)
  - PAIN IN EXTREMITY [None]
  - PARAESTHESIA [None]
  - ASTHMA [None]
  - PLANTAR FASCIITIS [None]
  - HYPOAESTHESIA [None]
  - VASCULAR RUPTURE [None]
  - BURNING SENSATION [None]
  - COUGH [None]
  - BACK PAIN [None]
